FAERS Safety Report 23094144 (Version 1)
Quarter: 2023Q4

REPORT INFORMATION
  Report Type: Spontaneous
  Country: US (occurrence: US)
  Receive Date: 20231023
  Receipt Date: 20231023
  Transmission Date: 20240110
  Serious: Yes (Other)
  Sender: FDA-Public Use
  Company Number: US-SA-SAC20231021000394

PATIENT
  Age: 55 Year
  Sex: Male
  Weight: 100.6 kg

DRUGS (1)
  1. DUPIXENT [Suspect]
     Active Substance: DUPILUMAB
     Dosage: 300MG, EVERY TWO WEEKS
     Route: 058
     Dates: start: 20230405, end: 20231018

REACTIONS (3)
  - Erectile dysfunction [Unknown]
  - Burning sensation [Recovered/Resolved]
  - Skin exfoliation [Recovered/Resolved]

NARRATIVE: CASE EVENT DATE: 20230101
